FAERS Safety Report 8772547 (Version 4)
Quarter: 2013Q2

REPORT INFORMATION
  Report Type: Report from Study
  Country: US (occurrence: US)
  Receive Date: 20120905
  Receipt Date: 20130412
  Transmission Date: 20140414
  Serious: Yes (Other)
  Sender: FDA-Public Use
  Company Number: US-ROCHE-1099219

PATIENT
  Age: 65 Year
  Sex: Female
  Weight: 78.09 kg

DRUGS (11)
  1. XELODA [Suspect]
     Indication: BREAST CANCER METASTATIC
     Route: 048
     Dates: start: 20120716
  2. XELODA [Suspect]
     Route: 048
     Dates: start: 20120807
  3. XELODA [Suspect]
     Route: 048
     Dates: start: 20120829, end: 20121106
  4. XELODA [Suspect]
     Route: 048
     Dates: start: 20120717
  5. CRESTOR [Concomitant]
     Indication: HYPERLIPIDAEMIA
     Route: 048
  6. TEMAZEPAM [Concomitant]
     Indication: INSOMNIA
     Route: 048
  7. XGEVA [Concomitant]
     Indication: BREAST CANCER
     Route: 058
     Dates: start: 20120716
  8. PREDNISONE [Concomitant]
  9. MECLIZINE [Concomitant]
     Route: 048
  10. AVAPRO [Concomitant]
     Route: 065
  11. HCTZ [Concomitant]
     Route: 065

REACTIONS (13)
  - Joint swelling [Recovering/Resolving]
  - Swelling [Recovered/Resolved with Sequelae]
  - Blister [Recovered/Resolved]
  - Lip blister [Recovered/Resolved]
  - Pain in extremity [Recovered/Resolved]
  - Local swelling [Recovered/Resolved]
  - Erythema [Recovering/Resolving]
  - Fatigue [Not Recovered/Not Resolved]
  - Dysgeusia [Not Recovered/Not Resolved]
  - Decreased appetite [Not Recovered/Not Resolved]
  - Retching [Recovered/Resolved]
  - Vertigo [Recovered/Resolved]
  - Dizziness [Recovered/Resolved]
